FAERS Safety Report 7739736 (Version 7)
Quarter: 2012Q4

REPORT INFORMATION
  Report Type: Report from Study
  Country: DE (occurrence: DE)
  Receive Date: 20101227
  Receipt Date: 20121123
  Transmission Date: 20130627
  Serious: Yes (Death, Hospitalization)
  Sender: FDA-Public Use
  Company Number: DE-BRISTOL-MYERS SQUIBB COMPANY-15451875

PATIENT
  Age: 69 Year
  Sex: Male
  Weight: 78.3 kg

DRUGS (7)
  1. CISPLATIN [Suspect]
     Indication: NON-SMALL CELL LUNG CANCER
     Dosage: Last dose on 30Nov10.held on 9Dec10.restart date on:22Dec12
     Route: 042
     Dates: start: 20101130
  2. GEMCITABINE HCL [Suspect]
     Indication: NON-SMALL CELL LUNG CANCER
     Dosage: Last dose on 30Nov10 and resumed on 09Dec2010, on day 8.
     Route: 042
     Dates: start: 20101130
  3. OMNIC [Concomitant]
     Dates: start: 20101129
  4. TRANSTEC [Concomitant]
     Dosage: Transtec 35
     Dates: start: 20101127
  5. LAXOBERAL [Concomitant]
     Dates: start: 20101130
  6. PANTOPRAZOLE [Concomitant]
     Dates: start: 20101110
  7. OMNIC [Concomitant]
     Dates: start: 20101129

REACTIONS (3)
  - Malignant neoplasm progression [Fatal]
  - Pulmonary embolism [Fatal]
  - Constipation [Not Recovered/Not Resolved]
